FAERS Safety Report 9260496 (Version 7)
Quarter: 2014Q2

REPORT INFORMATION
  Report Type: Spontaneous
  Country: US (occurrence: US)
  Receive Date: 20130429
  Receipt Date: 20140523
  Transmission Date: 20141212
  Serious: Yes (Hospitalization, Other)
  Sender: FDA-Public Use
  Company Number: US-SANOFI-AVENTIS-2013SA042747

PATIENT
  Age: 77 Year
  Sex: Male
  Weight: 84.82 kg

DRUGS (19)
  1. LOVENOX [Suspect]
     Indication: PULMONARY EMBOLISM
     Route: 065
     Dates: start: 20130205, end: 20130315
  2. WARFARIN [Concomitant]
     Dates: start: 20130202
  3. ZOLOFT [Concomitant]
     Dates: start: 1994
  4. MORPHINE [Concomitant]
  5. XANAX [Concomitant]
  6. NORVASC [Concomitant]
  7. AUGMENTIN [Concomitant]
  8. CIPROFLOXACIN [Concomitant]
  9. HYDROCHLOROTHIAZIDE [Concomitant]
     Route: 048
  10. LOPRESSOR [Concomitant]
     Route: 048
  11. NORCO [Concomitant]
  12. LISINOPRIL [Concomitant]
     Route: 048
  13. CYTOMEL [Concomitant]
     Route: 048
  14. SYNTHROID [Concomitant]
     Route: 048
  15. LIPITOR [Concomitant]
     Route: 048
  16. ASPIRIN [Concomitant]
     Route: 048
  17. TESTOSTERONE [Concomitant]
  18. HERBAL PREPARATION [Concomitant]
     Route: 048
  19. COUMADIN [Concomitant]

REACTIONS (25)
  - Haemoglobin decreased [Unknown]
  - Fear of death [Unknown]
  - Aphagia [Unknown]
  - Gastrointestinal motility disorder [Unknown]
  - Nuclear magnetic resonance imaging abnormal [Recovered/Resolved]
  - Haemorrhage [Unknown]
  - Weight decreased [Unknown]
  - Lethargy [Unknown]
  - Gait disturbance [Unknown]
  - Tremor [Unknown]
  - Muscle spasms [Unknown]
  - Skin discolouration [Unknown]
  - Depression [Unknown]
  - Injection site haemorrhage [Not Recovered/Not Resolved]
  - Injection site swelling [Not Recovered/Not Resolved]
  - Injection site bruising [Unknown]
  - Injection site rash [Unknown]
  - Injection site pain [Recovering/Resolving]
  - Injection site mass [Unknown]
  - Muscle spasms [Not Recovered/Not Resolved]
  - White blood cell count decreased [Unknown]
  - Iron deficiency [Unknown]
  - Wrong technique in drug usage process [Unknown]
  - Peripheral swelling [Unknown]
  - Incorrect route of drug administration [Unknown]
